FAERS Safety Report 9223264 (Version 1)
Quarter: 2013Q2

REPORT INFORMATION
  Report Type: Spontaneous
  Country: US (occurrence: None)
  Receive Date: 20130409
  Receipt Date: 20130409
  Transmission Date: 20140414
  Serious: No
  Sender: FDA-Public Use
  Company Number: None

PATIENT
  Age: 68 Year
  Sex: Male
  Weight: 73.2 kg

DRUGS (1)
  1. ALCOHOL [Suspect]
     Dosage: INDIVIDUAL SWAB ONCE EVEYR 2-3 DAYS, TOPICAL
     Route: 061
     Dates: start: 201303

REACTIONS (2)
  - Product quality issue [None]
  - Product contamination [None]
